FAERS Safety Report 10120696 (Version 2)
Quarter: 2015Q1

REPORT INFORMATION
  Report Type: Report from Study
  Country: JP (occurrence: JP)
  Receive Date: 20140425
  Receipt Date: 20150130
  Transmission Date: 20150720
  Serious: Yes (Death)
  Sender: FDA-Public Use
  Company Number: JP-009507513-1404JPN013116

PATIENT
  Age: 77 Year
  Sex: Female

DRUGS (1)
  1. DIAZOXIDE CAPSULES 25 MG ^MSD^ [Suspect]
     Active Substance: DIAZOXIDE
     Indication: HYPOGLYCAEMIA
     Dosage: 25 MG, BID
     Route: 048
     Dates: start: 20101101, end: 20110529

REACTIONS (1)
  - Ovarian cancer [Fatal]
